FAERS Safety Report 23753212 (Version 1)
Quarter: 2024Q2

REPORT INFORMATION
  Report Type: Spontaneous
  Country: US (occurrence: None)
  Receive Date: 20240417
  Receipt Date: 20240417
  Transmission Date: 20240716
  Serious: No
  Sender: FDA-Public Use
  Company Number: None

PATIENT
  Age: 58 Year
  Sex: Male

DRUGS (2)
  1. WILATE - VON WILLEBRAND FACTOR/COAGULATION FACTOR VIII COMPLEX (HUMAN) [Suspect]
     Active Substance: HUMAN COAGULATION FACTOR VIII/VON WILLEBRAND FACTOR COMPLEX
     Indication: Von Willebrand^s disease
     Dosage: 4120 UNITS WEEKLY IV?
     Route: 042
     Dates: start: 201511
  2. NORMAL SALINE FLUSH (5ML) [Concomitant]

REACTIONS (2)
  - Colonoscopy [None]
  - Haemoglobin decreased [None]

NARRATIVE: CASE EVENT DATE: 20240414
